FAERS Safety Report 24131421 (Version 3)
Quarter: 2024Q4

REPORT INFORMATION
  Report Type: Spontaneous
  Country: DE (occurrence: DE)
  Receive Date: 20240724
  Receipt Date: 20241225
  Transmission Date: 20250115
  Serious: Yes (Hospitalization)
  Sender: BOEHRINGER INGELHEIM
  Company Number: DE-BoehringerIngelheim-2024-BI-041648

PATIENT
  Age: 65 Year
  Sex: Male
  Weight: 80 kg

DRUGS (11)
  1. JARDIANCE [Suspect]
     Active Substance: EMPAGLIFLOZIN
     Indication: Product used for unknown indication
     Route: 048
     Dates: start: 20240617, end: 20240625
  2. ASPIRIN [Concomitant]
     Active Substance: ASPIRIN
     Indication: Product used for unknown indication
  3. Pantoprazol - 1 A Pahrma 40 mg magensaftres. Tab. [Concomitant]
     Indication: Product used for unknown indication
  4. Metoprololsuccinat dura 47.5 Retardtabletten [Concomitant]
     Indication: Product used for unknown indication
  5. SimvaHEXAL 40 mg Filmtabletten [Concomitant]
     Indication: Product used for unknown indication
  6. Baclofen AL 25 mg Tabletten [Concomitant]
     Indication: Product used for unknown indication
  7. Abasaglar 100 E/ml Injektionsl?sung KwikPen [Concomitant]
     Indication: Product used for unknown indication
     Dosage: 0-0-15-0 (AT 8.00 P.M.)
  8. NOVORAPID [Concomitant]
     Active Substance: INSULIN ASPART
     Indication: Product used for unknown indication
     Dosage: 15-8-10-0?AS WELL ACCORDING TO CORRECTION SCHEMA, TARGET 140-180 MG/DL
  9. Dekristol 1000 I.E. Tabletten [Concomitant]
     Indication: Product used for unknown indication
  10. Macrogol - 1 A Pharma Plv. z. He. e. Lsg. z. Einnehmen [Concomitant]
     Indication: Product used for unknown indication
  11. FLUPREDNIDENE ACETATE\MICONAZOLE NITRATE [Concomitant]
     Active Substance: FLUPREDNIDENE ACETATE\MICONAZOLE NITRATE
     Indication: Product used for unknown indication
     Dosage: 0.9 MG/17.37 MG - AS NECESSARY

REACTIONS (4)
  - Urinary tract infection [Recovered/Resolved]
  - Renal failure [Recovered/Resolved]
  - Ketoacidosis [Recovered/Resolved]
  - Dehydration [Recovered/Resolved]

NARRATIVE: CASE EVENT DATE: 20240624
